FAERS Safety Report 15386174 (Version 5)
Quarter: 2021Q3

REPORT INFORMATION
  Report Type: Spontaneous
  Country: JP (occurrence: JP)
  Receive Date: 20180914
  Receipt Date: 20210914
  Transmission Date: 20211014
  Serious: Yes (Hospitalization)
  Sender: FDA-Public Use
  Company Number: JP-BAYER-2018-140691

PATIENT
  Age: 43 Year
  Sex: Female
  Weight: 57 kg

DRUGS (3)
  1. FLOMOX [CEFCAPENE PIVOXIL HYDROCHLORIDE] [Concomitant]
     Active Substance: CEFCAPENE PIVOXIL HYDROCHLORIDE
     Indication: INFECTION PROPHYLAXIS
     Dosage: DAILY DOSE 300 MG
     Route: 048
     Dates: start: 20180621, end: 20180624
  2. MIRENA [Suspect]
     Active Substance: LEVONORGESTREL
     Indication: HEAVY MENSTRUAL BLEEDING
     Dosage: 20 MCG/24HR, CONT
     Route: 015
     Dates: start: 20170107, end: 20180421
  3. MIRENA [Suspect]
     Active Substance: LEVONORGESTREL
     Indication: HEAVY MENSTRUAL BLEEDING
     Dosage: 20 MCG/24HR, CONT
     Route: 015
     Dates: start: 20180621, end: 20180801

REACTIONS (7)
  - Ascites [Recovering/Resolving]
  - Ovarian cyst [None]
  - Uterine perforation [Recovered/Resolved]
  - Abdominal pain lower [Recovered/Resolved]
  - Peritonitis [Recovering/Resolving]
  - Peritoneal adhesions [None]
  - Ovarian enlargement [None]

NARRATIVE: CASE EVENT DATE: 20180731
